FAERS Safety Report 7022857-0 (Version None)
Quarter: 2010Q3

REPORT INFORMATION
  Report Type: 
  Country: None (occurrence: None)
  Receive Date: 20100916
  Receipt Date: 20100810
  Transmission Date: 20110219
  Serious: Yes (Hospitalization, Other)
  Sender: FDA-Public Use
  Company Number: DKLU1064309

PATIENT
  Age: 2 Year
  Sex: Male

DRUGS (12)
  1. SABRIL [Suspect]
     Indication: EPILEPSY
     Dosage: SEE IMAGE
     Route: 048
     Dates: start: 20091229, end: 20100101
  2. SABRIL [Suspect]
     Indication: INFANTILE SPASMS
     Dosage: SEE IMAGE
     Route: 048
     Dates: start: 20091229, end: 20100101
  3. SABRIL [Suspect]
     Indication: EPILEPSY
     Dosage: SEE IMAGE
     Route: 048
     Dates: start: 20100429, end: 20100101
  4. SABRIL [Suspect]
     Indication: INFANTILE SPASMS
     Dosage: SEE IMAGE
     Route: 048
     Dates: start: 20100429, end: 20100101
  5. SABRIL [Suspect]
     Indication: EPILEPSY
     Dosage: SEE IMAGE
     Route: 048
     Dates: start: 20100101, end: 20100810
  6. SABRIL [Suspect]
     Indication: INFANTILE SPASMS
     Dosage: SEE IMAGE
     Route: 048
     Dates: start: 20100101, end: 20100810
  7. SABRIL [Suspect]
     Indication: EPILEPSY
     Dosage: SEE IMAGE
     Route: 048
     Dates: start: 20100810
  8. SABRIL [Suspect]
     Indication: INFANTILE SPASMS
     Dosage: SEE IMAGE
     Route: 048
     Dates: start: 20100810
  9. KEPPRA (LEVETIRACETAM) (100 MG/ML) [Concomitant]
  10. CLONAZEPAM (CLONAZEPAM) (0.25 MG, TABLET) [Concomitant]
  11. PHENOBARBITAL (PHENOBARBITAL) (4 MG/ML) [Concomitant]
  12. DEPAKOTE [Concomitant]

REACTIONS (1)
  - CONVULSION [None]
